FAERS Safety Report 16092448 (Version 5)
Quarter: 2020Q2

REPORT INFORMATION
  Report Type: Spontaneous
  Country: US (occurrence: US)
  Receive Date: 20190319
  Receipt Date: 20200522
  Transmission Date: 20200713
  Serious: No
  Sender: FDA-Public Use
  Company Number: US-VIFOR (INTERNATIONAL) INC.-VIT-2016-06358

PATIENT
  Age: 48 Year
  Sex: Male

DRUGS (14)
  1. COLACE [Concomitant]
     Active Substance: DOCUSATE SODIUM
  2. VELTASSA [Suspect]
     Active Substance: PATIROMER
     Indication: HYPERKALAEMIA
     Route: 048
  3. CYCLOBENZAPRINE HCL [Concomitant]
     Active Substance: CYCLOBENZAPRINE HYDROCHLORIDE
  4. CHLORTHALIDONE. [Concomitant]
     Active Substance: CHLORTHALIDONE
  5. COREG [Concomitant]
     Active Substance: CARVEDILOL
  6. LEVEMIR [Concomitant]
     Active Substance: INSULIN DETEMIR
  7. VELTASSA [Suspect]
     Active Substance: PATIROMER
     Route: 048
     Dates: start: 20160923
  8. ATORVASTATIN CALCIUM. [Concomitant]
     Active Substance: ATORVASTATIN CALCIUM
  9. EDARBI [Concomitant]
     Active Substance: AZILSARTAN KAMEDOXOMIL
  10. HUMALOG [Concomitant]
     Active Substance: INSULIN LISPRO
  11. GABAPENTIN. [Concomitant]
     Active Substance: GABAPENTIN
  12. VIAGRA [Concomitant]
     Active Substance: SILDENAFIL CITRATE
  13. AMLODIPINE BESYLATE. [Concomitant]
     Active Substance: AMLODIPINE BESYLATE
  14. ASPIRIN. [Concomitant]
     Active Substance: ASPIRIN

REACTIONS (7)
  - Rash pruritic [Not Recovered/Not Resolved]
  - Drug intolerance [Unknown]
  - Constipation [Recovered/Resolved]
  - Drug ineffective [Unknown]
  - Off label use [Unknown]
  - Rash papular [Not Recovered/Not Resolved]
  - Product quality issue [Unknown]

NARRATIVE: CASE EVENT DATE: 201609
